FAERS Safety Report 4534533-4 (Version None)
Quarter: 2004Q4

REPORT INFORMATION
  Report Type: 
  Country: None (occurrence: None)
  Receive Date: 20041214
  Receipt Date: 20041015
  Transmission Date: 20050328
  Serious: No
  Sender: FDA-Public Use
  Company Number: 2004241157US

PATIENT
  Age: 65 Year
  Sex: Female
  Weight: 67.1 kg

DRUGS (1)
  1. BEXTRA [Suspect]
     Indication: ARTHRITIS
     Dosage: 20 MG, QD, ORAL
     Route: 048
     Dates: start: 20030101

REACTIONS (2)
  - ABDOMINAL PAIN [None]
  - EPICONDYLITIS [None]
